FAERS Safety Report 12735844 (Version 2)
Quarter: 2016Q4

REPORT INFORMATION
  Report Type: Spontaneous
  Country: US (occurrence: US)
  Receive Date: 20160913
  Receipt Date: 20161011
  Transmission Date: 20170207
  Serious: No
  Sender: FDA-Public Use
  Company Number: US-JNJFOC-20160719868

PATIENT
  Age: 63 Year
  Sex: Female
  Weight: 130.64 kg

DRUGS (17)
  1. GABAPENTIN. [Concomitant]
     Active Substance: GABAPENTIN
     Indication: NEUROPATHY PERIPHERAL
     Route: 065
  2. BUMEX [Concomitant]
     Active Substance: BUMETANIDE
     Indication: DIURETIC THERAPY
     Route: 048
  3. PRAVASTATIN. [Concomitant]
     Active Substance: PRAVASTATIN
     Dosage: AT BEDTIME
     Route: 065
  4. ELMIRON [Suspect]
     Active Substance: PENTOSAN POLYSULFATE SODIUM
     Indication: CYSTITIS INTERSTITIAL
     Route: 048
     Dates: start: 201607, end: 201607
  5. TRAMADOL. [Concomitant]
     Active Substance: TRAMADOL
     Route: 065
  6. GABAPENTIN. [Concomitant]
     Active Substance: GABAPENTIN
     Indication: RESTLESS LEGS SYNDROME
     Route: 065
  7. ELMIRON [Suspect]
     Active Substance: PENTOSAN POLYSULFATE SODIUM
     Indication: CYSTITIS INTERSTITIAL
     Route: 048
  8. OMEPRAZOLE. [Concomitant]
     Active Substance: OMEPRAZOLE
     Indication: GASTROOESOPHAGEAL REFLUX DISEASE
     Route: 065
  9. SYMBICORT [Concomitant]
     Active Substance: BUDESONIDE\FORMOTEROL FUMARATE DIHYDRATE
     Route: 065
  10. ROPINIROLE. [Concomitant]
     Active Substance: ROPINIROLE
     Indication: RESTLESS LEGS SYNDROME
     Dosage: 4 MG IN MORNING, 2 MG IN AFTERNOON AND 2 MG IN EVENING
     Route: 065
  11. ALBUTEROL. [Concomitant]
     Active Substance: ALBUTEROL
     Route: 065
  12. ELMIRON [Suspect]
     Active Substance: PENTOSAN POLYSULFATE SODIUM
     Indication: CYSTITIS INTERSTITIAL
     Route: 048
     Dates: start: 201309
  13. ELMIRON [Suspect]
     Active Substance: PENTOSAN POLYSULFATE SODIUM
     Indication: CYSTITIS INTERSTITIAL
     Route: 048
     Dates: start: 1997
  14. HYDROCHLOROTHIAZIDE. [Concomitant]
     Active Substance: HYDROCHLOROTHIAZIDE
     Route: 048
  15. SYNTHROID [Concomitant]
     Active Substance: LEVOTHYROXINE SODIUM
     Indication: HYPOTHYROIDISM
     Route: 065
  16. IRBESARTAN. [Concomitant]
     Active Substance: IRBESARTAN
     Route: 065
  17. BABY ASPIRIN [Concomitant]
     Active Substance: ASPIRIN
     Dosage: IN MORNING
     Route: 065

REACTIONS (5)
  - Condition aggravated [Not Recovered/Not Resolved]
  - Weight decreased [Unknown]
  - Arthritis [Not Recovered/Not Resolved]
  - Expired product administered [Unknown]
  - Pain [Recovered/Resolved]

NARRATIVE: CASE EVENT DATE: 201412
